FAERS Safety Report 15372043 (Version 2)
Quarter: 2018Q4

REPORT INFORMATION
  Report Type: Spontaneous
  Country: US (occurrence: US)
  Receive Date: 20180911
  Receipt Date: 20181002
  Transmission Date: 20190204
  Serious: No
  Sender: FDA-Public Use
  Company Number: US-TEVA-2018-US-952492

PATIENT

DRUGS (1)
  1. PROAIR HFA [Suspect]
     Active Substance: ALBUTEROL SULFATE
     Dosage: 2 PUFFS AS NEEDED
     Route: 065

REACTIONS (1)
  - Drug ineffective [Unknown]
